FAERS Safety Report 8428774-3 (Version None)
Quarter: 2012Q2

REPORT INFORMATION
  Report Type: 
  Country: None (occurrence: None)
  Receive Date: 20120612
  Receipt Date: 20120606
  Transmission Date: 20120825
  Serious: Yes (Death, Life-Threatening, Disabling, Other)
  Sender: FDA-Public Use
  Company Number: RU-ASTRAZENECA-2011SE71400

PATIENT
  Age: 50 Year
  Sex: Female
  Weight: 80 kg

DRUGS (13)
  1. DEXAMETHASONE [Concomitant]
     Route: 065
     Dates: start: 20111124
  2. FRAGMIN [Concomitant]
     Indication: THROMBOSIS PROPHYLAXIS
     Route: 058
     Dates: start: 20111123
  3. MIDAZOLAM [Concomitant]
     Route: 065
     Dates: start: 20111124
  4. GAMMA-HYDROXYBUTYRIC ACID [Concomitant]
     Route: 065
     Dates: start: 20111124
  5. SODIUM OXYBATE [Concomitant]
     Indication: ANAESTHESIA PROCEDURE
     Route: 042
     Dates: start: 20111123, end: 20111123
  6. PERFTORAN [Concomitant]
     Indication: HYPOXIC-ISCHAEMIC ENCEPHALOPATHY
     Route: 041
     Dates: start: 20111123
  7. HEMOHES [Concomitant]
     Indication: HYPOXIC-ISCHAEMIC ENCEPHALOPATHY
     Route: 041
     Dates: start: 20111123
  8. CERAXON (CITICOLINE) [Concomitant]
     Indication: HYPOXIC-ISCHAEMIC ENCEPHALOPATHY
     Route: 041
     Dates: start: 20111123
  9. DOFAMINE [Concomitant]
     Indication: POSITIVE CARDIAC INOTROPIC EFFECT
     Route: 041
     Dates: start: 20111123
  10. OMEZ [Concomitant]
     Indication: STRESS ULCER
     Route: 042
     Dates: start: 20111123
  11. MARCAINE [Suspect]
     Indication: ANAESTHESIA
     Route: 037
     Dates: start: 20111124
  12. ADRENALIN IN OIL INJ [Concomitant]
     Indication: RESUSCITATION
     Route: 042
     Dates: start: 20111123, end: 20111123
  13. CYTOFLAVIN (INOSINE + NICOTINAMIDE + RIBOFLAVIN MONONUCLEOTIDE + SUCCI [Concomitant]
     Indication: HYPOXIC-ISCHAEMIC ENCEPHALOPATHY
     Route: 041
     Dates: start: 20111123

REACTIONS (12)
  - CARDIAC ARREST [None]
  - MACULAR ISCHAEMIA [None]
  - BRAIN OEDEMA [None]
  - COMA [None]
  - DRUG-INDUCED LIVER INJURY [None]
  - PULMONARY EMBOLISM [None]
  - RESPIRATORY DISTRESS [None]
  - PNEUMONIA [None]
  - POSTRESUSCITATION ENCEPHALOPATHY [None]
  - BRONCHITIS [None]
  - HYPOXIC-ISCHAEMIC ENCEPHALOPATHY [None]
  - CARDIOMYOPATHY [None]
